FAERS Safety Report 5759157-2 (Version None)
Quarter: 2008Q2

REPORT INFORMATION
  Report Type: 
  Country: None (occurrence: None)
  Receive Date: 20080604
  Receipt Date: 20080528
  Transmission Date: 20081010
  Serious: Yes (Other)
  Sender: FDA-Public Use
  Company Number: PR-GILEAD-2008-0016629

PATIENT
  Age: 40 Year
  Sex: Female

DRUGS (3)
  1. VIREAD [Suspect]
  2. LOPINAVIR AND RITONAVIR [Concomitant]
     Route: 048
  3. LAMIVUDINE [Concomitant]
     Route: 048

REACTIONS (2)
  - ABORTION SPONTANEOUS [None]
  - PREGNANCY [None]
